FAERS Safety Report 24741342 (Version 1)
Quarter: 2024Q4

REPORT INFORMATION
  Report Type: Spontaneous
  Country: US (occurrence: US)
  Receive Date: 20241217
  Receipt Date: 20241217
  Transmission Date: 20250115
  Serious: No
  Sender: COSETTE PHARMACEUTICALS INC
  Company Number: US-COSETTE-CP2024US000401

PATIENT
  Age: 82 Year
  Sex: Male
  Weight: 83.91 kg

DRUGS (2)
  1. TRIAMCINOLONE ACETONIDE [Suspect]
     Active Substance: TRIAMCINOLONE ACETONIDE
     Indication: Musculoskeletal disorder
     Route: 061
  2. AQUAPHOR ANTIBIOTIC [Concomitant]
     Indication: Product used for unknown indication
     Route: 065

REACTIONS (6)
  - Skin burning sensation [Unknown]
  - Pruritus [Unknown]
  - Skin irritation [Unknown]
  - Dry skin [Unknown]
  - Product use in unapproved indication [Unknown]
  - Product prescribing issue [Unknown]
